FAERS Safety Report 13987576 (Version 3)
Quarter: 2018Q1

REPORT INFORMATION
  Report Type: Spontaneous
  Country: GB (occurrence: GB)
  Receive Date: 20170919
  Receipt Date: 20180123
  Transmission Date: 20180508
  Serious: Yes (Hospitalization, Disabling, Other)
  Sender: FDA-Public Use
  Company Number: GB-DRREDDYS-GER/UKI/17/0093405

PATIENT
  Age: 84 Year
  Sex: Female

DRUGS (2)
  1. CIPROFLOXACIN FILM-COATED TABLETS, DR. REDDDY^S [Suspect]
     Active Substance: CIPROFLOXACIN
     Indication: PRODUCT USED FOR UNKNOWN INDICATION
     Dates: start: 20130303
  2. PARACETAMOL [Concomitant]
     Active Substance: ACETAMINOPHEN
     Indication: PRODUCT USED FOR UNKNOWN INDICATION

REACTIONS (24)
  - Hypersensitivity [Unknown]
  - Fall [Unknown]
  - Spinal pain [Unknown]
  - Urinary incontinence [Unknown]
  - Poor quality sleep [Unknown]
  - Headache [Unknown]
  - Myalgia [Unknown]
  - Confusional state [Unknown]
  - Balance disorder [Unknown]
  - Asthenia [Unknown]
  - Stress [Unknown]
  - Skin ulcer [Recovered/Resolved]
  - Alopecia [Unknown]
  - Anal incontinence [Unknown]
  - Visual impairment [Unknown]
  - Peripheral swelling [Unknown]
  - Nerve injury [Unknown]
  - Epistaxis [Unknown]
  - Pain in extremity [Unknown]
  - Chest pain [Unknown]
  - Facial pain [Unknown]
  - Arthralgia [Unknown]
  - Back injury [Unknown]
  - Retracted nipple [Unknown]

NARRATIVE: CASE EVENT DATE: 20130303
